FAERS Safety Report 4667473-0 (Version None)
Quarter: 2005Q2

REPORT INFORMATION
  Report Type: 
  Country: None (occurrence: None)
  Receive Date: 20050425
  Receipt Date: 20050307
  Transmission Date: 20051028
  Serious: Yes (Other)
  Sender: FDA-Public Use
  Company Number: 17041

PATIENT
  Sex: Male
  Weight: 113.3993 kg

DRUGS (1)
  1. MITOMYCIN [Suspect]
     Indication: BLADDER CANCER
     Dosage: 50 MG/CATHETER
     Dates: start: 20050215, end: 20050222

REACTIONS (1)
  - RENAL IMPAIRMENT [None]
